FAERS Safety Report 5506760-0 (Version None)
Quarter: 2007Q4

REPORT INFORMATION
  Report Type: 
  Country: None (occurrence: None)
  Receive Date: 20071105
  Receipt Date: 20071029
  Transmission Date: 20080405
  Serious: Yes (Hospitalization)
  Sender: FDA-Public Use
  Company Number: US-ELI_LILLY_AND_COMPANY-US200710007107

PATIENT
  Sex: Female

DRUGS (5)
  1. HUMALOG [Suspect]
  2. HUMALOG [Suspect]
  3. HUMULIN R [Suspect]
  4. HUMULIN N [Suspect]
     Dates: start: 20070613, end: 20070805
  5. LANTUS [Concomitant]
     Dosage: UNK, UNK

REACTIONS (3)
  - DRUG EXPOSURE DURING PREGNANCY [None]
  - GLYCOSYLATED HAEMOGLOBIN INCREASED [None]
  - HOSPITALISATION [None]
